FAERS Safety Report 13054164 (Version 1)
Quarter: 2016Q4

REPORT INFORMATION
  Report Type: Spontaneous
  Country: FR (occurrence: FR)
  Receive Date: 20161222
  Receipt Date: 20161222
  Transmission Date: 20170207
  Serious: Yes (Hospitalization)
  Sender: FDA-Public Use
  Company Number: FR-SA-2016SA232158

PATIENT
  Age: 72 Year
  Sex: Female

DRUGS (8)
  1. ESOMEPRAZOLE [Concomitant]
     Active Substance: ESOMEPRAZOLE
     Route: 048
  2. ISOPTINE [Concomitant]
     Active Substance: VERAPAMIL HYDROCHLORIDE
     Dosage: 240 MG, FILM COATED PROLONGED RELEASE DIVISIBLE TABLET
     Route: 048
     Dates: start: 20160519, end: 20160601
  3. ALDACTONE [Concomitant]
     Active Substance: SPIRONOLACTONE
     Dosage: 75 MG, FILM COATED DIVISIBLE TABLET
     Route: 048
  4. LOVENOX [Suspect]
     Active Substance: ENOXAPARIN SODIUM
     Indication: PROPHYLAXIS
     Dosage: 4000 IU ANTI-XA / 0.4 ML SOLUTION FOR INJECTION IN CARTRIDGE
     Route: 058
     Dates: start: 20160519
  5. COLCHICINE. [Concomitant]
     Active Substance: COLCHICINE
     Route: 048
     Dates: end: 20160601
  6. DIFFU K [Concomitant]
     Active Substance: POTASSIUM CHLORIDE
     Route: 048
  7. FUROSEMIDE. [Concomitant]
     Active Substance: FUROSEMIDE
     Route: 048
  8. AVLOCARDYL [Concomitant]
     Active Substance: PROPRANOLOL HYDROCHLORIDE
     Indication: VARICES OESOPHAGEAL
     Dosage: 40 MG COMPRESSED TABLET
     Route: 048
     Dates: start: 20160517

REACTIONS (2)
  - Stroke in evolution [Recovered/Resolved with Sequelae]
  - Cerebral haemorrhage [Recovered/Resolved with Sequelae]

NARRATIVE: CASE EVENT DATE: 20160601
